FAERS Safety Report 6641219-9 (Version None)
Quarter: 2010Q1

REPORT INFORMATION
  Report Type: 
  Country: None (occurrence: None)
  Receive Date: 20100303
  Receipt Date: 20090716
  Transmission Date: 20100710
  Serious: Yes (Hospitalization)
  Sender: FDA-Public Use
  Company Number: 644725

PATIENT
  Age: 33 Year
  Sex: Female
  Weight: 76.7 kg

DRUGS (12)
  1. BONIVA [Suspect]
     Indication: DRUG USE FOR UNKNOWN INDICATION
     Dosage: INTRAVENOUS
     Route: 042
     Dates: start: 20090607, end: 20090607
  2. ATIVAN [Concomitant]
  3. AMBIEN [Concomitant]
  4. NEXIUM [Concomitant]
  5. LORTAB [Concomitant]
  6. MS CONTIN [Concomitant]
  7. B12 (CYANOCOBALAMIN) [Concomitant]
  8. VITAMINE D (VITAMIN D NOS) [Concomitant]
  9. VITAMIN B1 TAB [Concomitant]
  10. DUONEB (IPRATROPIUM BROMIDE/SALBUTAMOL) [Concomitant]
  11. CORAL CALCIUM SUPREME (CALCIUM/FOLIC ACID/MINERALS NOS/VITAMIN NOS) [Concomitant]
  12. SOMA (*AMPICILLIN/*AMPICILLIN SODIUM/*CAFFEINE/*CARISOPRODOL/*CHLORZOX [Concomitant]

REACTIONS (6)
  - BEDRIDDEN [None]
  - BONE PAIN [None]
  - DIARRHOEA [None]
  - MYALGIA [None]
  - PAIN IN JAW [None]
  - PARAESTHESIA [None]
